FAERS Safety Report 15795043 (Version 1)
Quarter: 2019Q1

REPORT INFORMATION
  Report Type: Spontaneous
  Country: US (occurrence: US)
  Receive Date: 20190107
  Receipt Date: 20190107
  Transmission Date: 20190417
  Serious: Yes (Other)
  Sender: FDA-Public Use
  Company Number: None

PATIENT
  Age: 23 Year
  Sex: Female
  Weight: 79.4 kg

DRUGS (7)
  1. METHYLCELLULOSE [Concomitant]
     Active Substance: METHYLCELLULOSES
  2. ACETAMINOPHEN, CAFFEINE, PYRILAMINE [Concomitant]
  3. LEVONORGESTROL [Concomitant]
  4. CETRIZINE [Concomitant]
     Active Substance: CETIRIZINE HYDROCHLORIDE
  5. SUMATRIPTAN. [Concomitant]
     Active Substance: SUMATRIPTAN
  6. TROKENDI [Concomitant]
     Active Substance: TOPIRAMATE
  7. EMGALITY [Suspect]
     Active Substance: GALCANEZUMAB-GNLM
     Indication: MIGRAINE
     Dosage: ?          OTHER FREQUENCY:MONTHLY;?
     Route: 058
     Dates: start: 20181108, end: 20181208

REACTIONS (5)
  - Injection site swelling [None]
  - Tongue pruritus [None]
  - Urinary tract infection [None]
  - Abdominal pain upper [None]
  - Injection site pain [None]

NARRATIVE: CASE EVENT DATE: 20181208
